FAERS Safety Report 17338797 (Version 1)
Quarter: 2020Q1

REPORT INFORMATION
  Report Type: Spontaneous
  Country: US (occurrence: US)
  Receive Date: 20200129
  Receipt Date: 20200129
  Transmission Date: 20200409
  Serious: No
  Sender: FDA-Public Use
  Company Number: US-ALLERGAN-1944981US

PATIENT
  Age: 76 Year
  Sex: Female

DRUGS (5)
  1. NEXIUM [Concomitant]
     Active Substance: ESOMEPRAZOLE MAGNESIUM
     Indication: GASTROOESOPHAGEAL REFLUX DISEASE
     Dosage: DAILY
     Route: 048
  2. CLONAZEPAM. [Concomitant]
     Active Substance: CLONAZEPAM
     Indication: ANXIETY
     Dosage: UNK UNK, PRN
     Route: 048
  3. PRED MILD [Concomitant]
     Active Substance: PREDNISOLONE ACETATE
     Indication: KERATITIS
  4. PRED FORTE [Suspect]
     Active Substance: PREDNISOLONE ACETATE
     Indication: KERATITIS
     Dosage: 2 GTT, QD
     Route: 047
  5. PRED FORTE [Suspect]
     Active Substance: PREDNISOLONE ACETATE
     Indication: CORNEAL TRANSPLANT

REACTIONS (2)
  - Product substitution issue [Unknown]
  - Incorrect dose administered [Unknown]
